APPROVED DRUG PRODUCT: ATAZANAVIR SULFATE
Active Ingredient: ATAZANAVIR SULFATE
Strength: EQ 150MG BASE
Dosage Form/Route: CAPSULE;ORAL
Application: A212278 | Product #001 | TE Code: AB
Applicant: HETERO LABS LTD UNIT III
Approved: Feb 2, 2022 | RLD: No | RS: No | Type: RX